FAERS Safety Report 5997338-3 (Version None)
Quarter: 2008Q4

REPORT INFORMATION
  Report Type: 
  Country: None (occurrence: None)
  Receive Date: 20081212
  Receipt Date: 20081109
  Transmission Date: 20090506
  Serious: No
  Sender: FDA-Public Use
  Company Number: US-ABBOTT-08P-163-0487005-00

PATIENT
  Sex: Female

DRUGS (3)
  1. HUMIRA [Suspect]
     Indication: CROHN'S DISEASE
     Route: 058
     Dates: start: 20081101
  2. TOLNAFTATE [Concomitant]
     Indication: FUNGAL INFECTION
  3. ANTIBIOTICS [Concomitant]
     Indication: FURUNCLE

REACTIONS (5)
  - CONDITION AGGRAVATED [None]
  - FURUNCLE [None]
  - IMPAIRED HEALING [None]
  - RHINORRHOEA [None]
  - VISION BLURRED [None]
